FAERS Safety Report 18108726 (Version 1)
Quarter: 2020Q3

REPORT INFORMATION
  Report Type: Spontaneous
  Country: AU (occurrence: AU)
  Receive Date: 20200804
  Receipt Date: 20200804
  Transmission Date: 20201103
  Serious: Yes (Other)
  Sender: FDA-Public Use
  Company Number: AU-JNJFOC-20200743241

PATIENT
  Age: 56 Year
  Sex: Female

DRUGS (13)
  1. AROPAX [Concomitant]
     Active Substance: PAROXETINE HYDROCHLORIDE
  2. LANREOTIDE [Suspect]
     Active Substance: LANREOTIDE
  3. SEVREDOL [Concomitant]
     Active Substance: MORPHINE
  4. XIFAXAN [Concomitant]
     Active Substance: RIFAXIMIN
  5. ESTRIOL [Concomitant]
     Active Substance: ESTRIOL
  6. ALDACTONE [Concomitant]
     Active Substance: SPIRONOLACTONE
  7. PANTOPRAZOLE [Concomitant]
     Active Substance: PANTOPRAZOLE
  8. ACTILAX                            /00163401/ [Concomitant]
     Active Substance: LACTULOSE
  9. PANADOL [Concomitant]
     Active Substance: ACETAMINOPHEN
  10. DUROGESIC [Suspect]
     Active Substance: FENTANYL
     Indication: PRODUCT USED FOR UNKNOWN INDICATION
     Route: 062
  11. HYDROMORPHONE [Concomitant]
     Active Substance: HYDROMORPHONE
  12. ONDANSETRON [Suspect]
     Active Substance: ONDANSETRON
  13. MOVICOL [Concomitant]
     Active Substance: POLYETHYLENE GLYCOL 3350\POTASSIUM CHLORIDE\SODIUM BICARBONATE\SODIUM CHLORIDE

REACTIONS (12)
  - Feeling abnormal [Unknown]
  - Constipation [Unknown]
  - Pain [Unknown]
  - Nausea [Unknown]
  - Fractured sacrum [Unknown]
  - Vomiting [Unknown]
  - Product dose omission issue [Unknown]
  - Diarrhoea [Unknown]
  - Dizziness [Unknown]
  - Fall [Unknown]
  - Fear of injection [Unknown]
  - Urinary tract infection [Unknown]
